FAERS Safety Report 9362527 (Version 1)
Quarter: 2013Q2

REPORT INFORMATION
  Report Type: Spontaneous
  Country: US (occurrence: US)
  Receive Date: 20130622
  Receipt Date: 20130622
  Transmission Date: 20140414
  Serious: No
  Sender: FDA-Public Use
  Company Number: US-US-EMD SERONO, INC.-7158097

PATIENT
  Age: 47 Year
  Sex: Male
  Weight: 100 kg

DRUGS (2)
  1. REBIF [Suspect]
     Indication: PRODUCT USED FOR UNKNOWN INDICATION
     Route: 058
     Dates: start: 20120726
  2. REBIF [Suspect]
     Route: 058
     Dates: start: 20120822

REACTIONS (8)
  - Feeling abnormal [Not Recovered/Not Resolved]
  - Coordination abnormal [Not Recovered/Not Resolved]
  - Vertigo [Not Recovered/Not Resolved]
  - Fatigue [Not Recovered/Not Resolved]
  - Pain [Not Recovered/Not Resolved]
  - Injection site reaction [Unknown]
  - Injection site bruising [Not Recovered/Not Resolved]
  - White blood cell count decreased [Unknown]
